FAERS Safety Report 7927864-9 (Version None)
Quarter: 2011Q4

REPORT INFORMATION
  Report Type: 
  Country: None (occurrence: None)
  Receive Date: 20111118
  Receipt Date: 20111118
  Transmission Date: 20120403
  Serious: Yes (Life-Threatening, Hospitalization)
  Sender: FDA-Public Use
  Company Number: None

PATIENT
  Age: 54 Year
  Sex: Female
  Weight: 81.646 kg

DRUGS (1)
  1. COPAXONE [Suspect]
     Indication: MULTIPLE SCLEROSIS
     Dosage: INJECT 20MG
     Route: 058
     Dates: start: 20110823, end: 20110828

REACTIONS (11)
  - FLUSHING [None]
  - CHEST DISCOMFORT [None]
  - SUBDURAL HAEMATOMA [None]
  - ADVERSE DRUG REACTION [None]
  - HEADACHE [None]
  - FEELING HOT [None]
  - NECK PAIN [None]
  - ERYTHEMA [None]
  - BLOOD PRESSURE INCREASED [None]
  - COUGH [None]
  - DYSPNOEA [None]
